FAERS Safety Report 7100181-5 (Version None)
Quarter: 2010Q4

REPORT INFORMATION
  Report Type: 
  Country: None (occurrence: None)
  Receive Date: 20101112
  Receipt Date: 20100816
  Transmission Date: 20110411
  Serious: No
  Sender: FDA-Public Use
  Company Number: A0876111A

PATIENT
  Age: 58 Year
  Sex: Male

DRUGS (11)
  1. CARVEDILOL [Suspect]
     Dosage: 25MG TWICE PER DAY
     Route: 048
     Dates: start: 20100401, end: 20100601
  2. COREG CR [Suspect]
     Dosage: 40MG PER DAY
     Route: 048
     Dates: start: 20100601
  3. COREG CR [Suspect]
     Dosage: 80MG PER DAY
     Route: 048
     Dates: start: 20100801
  4. CRESTOR [Concomitant]
  5. ONGLYZA [Concomitant]
  6. CILOSTAZOL [Concomitant]
  7. SPIRONOLACTONE [Concomitant]
  8. LOVAZA [Concomitant]
     Dosage: 1G PER DAY
  9. MAGNESIUM [Concomitant]
  10. VITAMIN B COMPLEX CAP [Concomitant]
  11. ASPIRIN [Concomitant]
     Dosage: 325MG PER DAY

REACTIONS (2)
  - DIARRHOEA [None]
  - FATIGUE [None]
